FAERS Safety Report 4422519-X (Version None)
Quarter: 2004Q3

REPORT INFORMATION
  Report Type: 
  Country: None (occurrence: None)
  Receive Date: 20040713
  Receipt Date: 20040115
  Transmission Date: 20050211
  Serious: No
  Sender: FDA-Public Use
  Company Number: PHEH2004US00871

PATIENT
  Age: 21 Year
  Sex: Female

DRUGS (2)
  1. ELIDEL [Suspect]
     Indication: RASH
     Dosage: QD, TOPICAL
     Route: 061
     Dates: start: 20031120
  2. ETHANOL (ETHANOL) [Suspect]

REACTIONS (4)
  - ALCOHOL INTERACTION [None]
  - ERYTHEMA [None]
  - FLUSHING [None]
  - SKIN WARM [None]
